FAERS Safety Report 5655281-3 (Version None)
Quarter: 2008Q1

REPORT INFORMATION
  Report Type: 
  Country: None (occurrence: None)
  Receive Date: 20080307
  Receipt Date: 20080228
  Transmission Date: 20080703
  Serious: Yes (Hospitalization, Congenital Anomaly)
  Sender: FDA-Public Use
  Company Number: B0511078A

PATIENT
  Age: 4 Day
  Sex: Female

DRUGS (2)
  1. AVANDAMET [Suspect]
     Dates: end: 20070416
  2. TRIATEC [Suspect]
     Dosage: 2.5MG PER DAY
     Dates: end: 20070416

REACTIONS (8)
  - ATRIAL SEPTAL DEFECT [None]
  - CARDIAC DISORDER [None]
  - CARDIAC FAILURE [None]
  - CARDIAC MURMUR [None]
  - DRUG EXPOSURE DURING PREGNANCY [None]
  - PATENT DUCTUS ARTERIOSUS [None]
  - VENTRICULAR SEPTAL DEFECT [None]
  - WEIGHT GAIN POOR [None]
